FAERS Safety Report 8942186 (Version 1)
Quarter: 2012Q4

REPORT INFORMATION
  Report Type: Report from Study
  Country: BR (occurrence: BR)
  Receive Date: 20121202
  Receipt Date: 20121202
  Transmission Date: 20130627
  Serious: Yes (Other)
  Sender: FDA-Public Use
  Company Number: BR-ABBOTT-12P-020-1014701-00

PATIENT
  Sex: Female
  Weight: 56 kg

DRUGS (5)
  1. HUMIRA [Suspect]
     Indication: RHEUMATOID ARTHRITIS
     Route: 058
  2. PREDNISONE (NON-ABBOTT) [Concomitant]
     Indication: ARTHRITIS
     Route: 048
     Dates: start: 2008
  3. LEFLUNOMIDE [Concomitant]
     Indication: ARTHRITIS
     Route: 048
     Dates: start: 2008
  4. DICLOFENAC (NON-ABBOTT) [Concomitant]
     Indication: PAIN
     Route: 048
     Dates: start: 2008
  5. PREDNISONE (METICORTEN) (NON-ABBOTT) [Concomitant]
     Indication: ARTHRITIS
     Route: 047
     Dates: start: 2005

REACTIONS (1)
  - Tooth delamination [Unknown]
